FAERS Safety Report 5296226-8 (Version None)
Quarter: 2007Q2

REPORT INFORMATION
  Report Type: 
  Country: None (occurrence: None)
  Receive Date: 20070413
  Receipt Date: 20070404
  Transmission Date: 20071010
  Serious: Yes (Hospitalization)
  Sender: FDA-Public Use
  Company Number: DE-GLAXOSMITHKLINE-B0465804A

PATIENT
  Age: 50 Year
  Sex: Female
  Weight: 68 kg

DRUGS (3)
  1. LAPATINIB [Suspect]
     Indication: BREAST CANCER METASTATIC
     Dosage: 1750MG PER DAY
     Route: 048
     Dates: start: 20070308
  2. CAPECITABINE [Suspect]
     Indication: BREAST CANCER METASTATIC
     Dosage: 2000MG PER DAY
     Route: 048
     Dates: start: 20070308
  3. FORTECORTIN [Concomitant]
     Dates: start: 20070308, end: 20070402

REACTIONS (4)
  - CONSTIPATION [None]
  - DIARRHOEA [None]
  - ILEUS [None]
  - VOMITING [None]
